FAERS Safety Report 10907623 (Version 1)
Quarter: 2015Q1

REPORT INFORMATION
  Report Type: Spontaneous
  Country: DE (occurrence: None)
  Receive Date: 20150309
  Receipt Date: 20150309
  Transmission Date: 20150721
  Serious: Yes (Other)
  Sender: FDA-Public Use
  Company Number: 2015COR00050

PATIENT
  Age: 44 Year
  Sex: Male

DRUGS (4)
  1. METHAMPHETAMINE (METHAMPHETAMINE) [Suspect]
     Active Substance: METHAMPHETAMINE
  2. AMPHETAMINE (AMPHETAMINE) [Suspect]
     Active Substance: AMPHETAMINE
  3. PHENPROCOUMON [Concomitant]
     Active Substance: PHENPROCOUMON
  4. ASA/DYPIRIDAMOL (ASCETYLSALICYLIC ACID AND DYPIRIDAMOLE) [Concomitant]

REACTIONS (3)
  - Blood lactate dehydrogenase increased [None]
  - Drug abuse [None]
  - Thrombosis in device [None]
